FAERS Safety Report 6399351-3 (Version None)
Quarter: 2009Q4

REPORT INFORMATION
  Report Type: 
  Country: None (occurrence: None)
  Receive Date: 20091014
  Receipt Date: 20090929
  Transmission Date: 20100525
  Serious: Yes (Other)
  Sender: FDA-Public Use
  Company Number: US-BAYER-200935149NA

PATIENT
  Sex: Female

DRUGS (2)
  1. CIPRO [Suspect]
     Indication: URINARY TRACT INFECTION
     Dates: start: 20090101
  2. LEVAQUIN [Suspect]
     Indication: URINARY TRACT INFECTION
     Dates: start: 20090101

REACTIONS (1)
  - TENDON RUPTURE [None]
